FAERS Safety Report 6875844-7 (Version None)
Quarter: 2010Q3

REPORT INFORMATION
  Report Type: 
  Country: None (occurrence: None)
  Receive Date: 20100727
  Receipt Date: 20070702
  Transmission Date: 20110219
  Serious: Yes (Hospitalization, Other)
  Sender: FDA-Public Use
  Company Number: US-PFIZER INC-2006149972

PATIENT
  Sex: Female
  Weight: 54.4 kg

DRUGS (2)
  1. CELEBREX [Suspect]
     Indication: PAIN
     Dosage: FREQUENCY:ONCE OR TWICE
     Dates: start: 19981231
  2. VIOXX [Suspect]
     Indication: PAIN
     Dosage: 12.5MG + 25 MG,FREQUENCY:ONCE OR TWICE
     Dates: start: 20010101

REACTIONS (2)
  - CEREBROVASCULAR ACCIDENT [None]
  - MYOCARDIAL INFARCTION [None]
